FAERS Safety Report 5162405-3 (Version None)
Quarter: 2006Q4

REPORT INFORMATION
  Report Type: 
  Country: None (occurrence: None)
  Receive Date: 20061128
  Receipt Date: 20061128
  Transmission Date: 20070319
  Serious: Yes (Other)
  Sender: FDA-Public Use
  Company Number: None

PATIENT
  Age: 57 Year
  Sex: Male
  Weight: 105.2345 kg

DRUGS (5)
  1. DILAUDID [Suspect]
     Indication: PROCEDURAL PAIN
     Dosage: 2MG/1ML IV
     Route: 042
     Dates: start: 20060727
  2. PERCOCET [Concomitant]
  3. BENADRYL [Concomitant]
  4. IPRATROPIUM BROMIDE [Concomitant]
  5. LEVALBUTEROL HCL [Concomitant]

REACTIONS (2)
  - RASH MACULAR [None]
  - RASH PRURITIC [None]
